FAERS Safety Report 14227445 (Version 1)
Quarter: 2017Q4

REPORT INFORMATION
  Report Type: Spontaneous
  Country: JP (occurrence: JP)
  Receive Date: 20171127
  Receipt Date: 20171127
  Transmission Date: 20180321
  Serious: Yes (Other)
  Sender: FDA-Public Use
  Company Number: JP-BAUSCH-BL-2017-032152

PATIENT
  Age: 74 Year
  Sex: Female

DRUGS (3)
  1. LUCENTIS [Suspect]
     Active Substance: RANIBIZUMAB
     Indication: MACULAR DEGENERATION
     Dosage: 1:5 TIMES (X5), AS NEEDED, EVERY 4 TO 5 MONTHS
     Route: 050
  2. AVASTIN [Concomitant]
     Active Substance: BEVACIZUMAB
     Indication: POLYPOIDAL CHOROIDAL VASCULOPATHY
     Route: 065
  3. VISUDYNE [Suspect]
     Active Substance: VERTEPORFIN
     Indication: POLYPOIDAL CHOROIDAL VASCULOPATHY
     Route: 065

REACTIONS (10)
  - Retinal oedema [Unknown]
  - Eye haemorrhage [Unknown]
  - Retinal vascular disorder [Unknown]
  - Retinal haemorrhage [Unknown]
  - Retinal depigmentation [Unknown]
  - Visual acuity reduced [Unknown]
  - Macular degeneration [Unknown]
  - Retinal exudates [Unknown]
  - Detachment of retinal pigment epithelium [Unknown]
  - Polypoidal choroidal vasculopathy [Unknown]
